FAERS Safety Report 17618311 (Version 1)
Quarter: 2020Q2

REPORT INFORMATION
  Report Type: Spontaneous
  Country: US (occurrence: US)
  Receive Date: 20200402
  Receipt Date: 20200402
  Transmission Date: 20200713
  Serious: No
  Sender: FDA-Public Use
  Company Number: US-ROCHE-2261632

PATIENT
  Sex: Male
  Weight: 77.18 kg

DRUGS (1)
  1. ERIVEDGE [Suspect]
     Active Substance: VISMODEGIB
     Indication: BASAL CELL CARCINOMA
     Route: 048
     Dates: start: 2018

REACTIONS (5)
  - Hair growth abnormal [Unknown]
  - Ageusia [Unknown]
  - Muscle spasms [Unknown]
  - Alopecia [Unknown]
  - Diarrhoea [Unknown]
